FAERS Safety Report 24786898 (Version 1)
Quarter: 2024Q4

REPORT INFORMATION
  Report Type: Spontaneous
  Country: FR (occurrence: FR)
  Receive Date: 20241230
  Receipt Date: 20241230
  Transmission Date: 20250114
  Serious: Yes (Other)
  Sender: DEXCEL
  Company Number: None

PATIENT
  Age: 80 Year
  Sex: Male
  Weight: 96 kg

DRUGS (9)
  1. CLINDAMYCIN HYDROCHLORIDE [Suspect]
     Active Substance: CLINDAMYCIN HYDROCHLORIDE
     Indication: Endocarditis prophylaxis
     Route: 048
     Dates: start: 20241112, end: 20241119
  2. PAROEX [Suspect]
     Active Substance: CHLORHEXIDINE GLUCONATE
     Indication: Dental disorder prophylaxis
     Route: 002
     Dates: start: 20241114, end: 20241119
  3. AMIODARONE [Suspect]
     Active Substance: AMIODARONE
     Indication: Atrial fibrillation
     Route: 048
     Dates: start: 20241107, end: 20241120
  4. OCTREOTIDE ACETATE [Suspect]
     Active Substance: OCTREOTIDE ACETATE
     Indication: Gastrointestinal haemorrhage
     Route: 040
     Dates: start: 20241115, end: 20241120
  5. VENOFER [Suspect]
     Active Substance: IRON SUCROSE
     Indication: Iron deficiency anaemia
     Dosage: IN TOTAL
     Route: 040
     Dates: start: 20241108, end: 20241114
  6. PANTOPRAZOLE [Concomitant]
     Active Substance: PANTOPRAZOLE
  7. ATORVASTATIN [Concomitant]
     Active Substance: ATORVASTATIN
  8. TAMSULOSIN HYDROCHLORIDE [Concomitant]
     Active Substance: TAMSULOSIN HYDROCHLORIDE
  9. HEPARIN SODIUM [Concomitant]
     Active Substance: HEPARIN SODIUM

REACTIONS (2)
  - Rash maculo-papular [Recovering/Resolving]
  - Eosinophilia [Recovering/Resolving]

NARRATIVE: CASE EVENT DATE: 20241118
